FAERS Safety Report 5810782-X (Version None)
Quarter: 2008Q3

REPORT INFORMATION
  Report Type: 
  Country: None (occurrence: None)
  Receive Date: 20080715
  Receipt Date: 20080707
  Transmission Date: 20090109
  Serious: Yes (Hospitalization, Disabling)
  Sender: FDA-Public Use
  Company Number: FR-AMGEN-US288126

PATIENT
  Sex: Female
  Weight: 89 kg

DRUGS (5)
  1. ENBREL [Suspect]
     Indication: RHEUMATOID ARTHRITIS
     Route: 058
     Dates: start: 20030327, end: 20031103
  2. DEROXAT [Concomitant]
     Indication: DEPRESSION
     Dosage: UNKNOWN
     Route: 048
  3. PLAQUENIL [Concomitant]
     Indication: RHEUMATOID ARTHRITIS
     Dosage: UNKNOWN
     Route: 048
  4. RIFINAH [Concomitant]
     Indication: ANTIBIOTIC PROPHYLAXIS
     Dosage: 2 TABLETS TOTAL DAILY
     Route: 048
     Dates: start: 20021217, end: 20030702
  5. TAHOR [Concomitant]
     Indication: HYPERCHOLESTEROLAEMIA
     Dosage: 10 MG; FREQUENCY UNSPECIFIED
     Route: 048

REACTIONS (10)
  - BREAST CANCER METASTATIC [None]
  - CONDITION AGGRAVATED [None]
  - DIPLOPIA [None]
  - EMOTIONAL DISORDER [None]
  - FATIGUE [None]
  - LYMPHANGIOSIS CARCINOMATOSA [None]
  - MOBILITY DECREASED [None]
  - RHEUMATOID ARTHRITIS [None]
  - SCOTOMA [None]
  - VISUAL IMPAIRMENT [None]
